FAERS Safety Report 21007046 (Version 1)
Quarter: 2022Q2

REPORT INFORMATION
  Report Type: Spontaneous
  Country: GB (occurrence: GB)
  Receive Date: 20220625
  Receipt Date: 20220625
  Transmission Date: 20220721
  Serious: Yes (Other)
  Sender: FDA-Public Use
  Company Number: None

PATIENT
  Age: 49 Year
  Sex: Male
  Weight: 97.00 kg

DRUGS (5)
  1. ALLOPURINOL [Suspect]
     Active Substance: ALLOPURINOL
     Indication: Product used for unknown indication
     Dosage: 300 MG OD
     Route: 048
     Dates: start: 20220607, end: 20220608
  2. CLARITHROMYCIN [Concomitant]
     Active Substance: CLARITHROMYCIN
     Dosage: 1 TABLET TWICE A DAY
     Dates: start: 20220525
  3. ETORICOXIB [Concomitant]
     Active Substance: ETORICOXIB
     Dosage: 1 TABLET ONCE DAILY
     Dates: start: 20220509
  4. MOMETASONE [Concomitant]
     Active Substance: MOMETASONE
     Dosage: 2 SPRAYS EACH NOSTRIL EVERY DAY, 50 MCG/DOSE
     Dates: start: 20220509
  5. METHOTREXATE SODIUM [Concomitant]
     Active Substance: METHOTREXATE SODIUM
     Dosage: INJ 20MG/0.4ML ONCE WEEKLY
     Dates: start: 20220509

REACTIONS (4)
  - Chest pain [Unknown]
  - Palpitations [Unknown]
  - Blood pressure increased [Unknown]
  - Malaise [Unknown]

NARRATIVE: CASE EVENT DATE: 20220607
